FAERS Safety Report 6962694-6 (Version None)
Quarter: 2010Q3

REPORT INFORMATION
  Report Type: 
  Country: None (occurrence: None)
  Receive Date: 20100902
  Receipt Date: 20100825
  Transmission Date: 20110219
  Serious: Yes (Other)
  Sender: FDA-Public Use
  Company Number: AU-PFIZER INC-2010108465

PATIENT
  Age: 40 Year
  Sex: Male

DRUGS (3)
  1. ZELDOX [Suspect]
     Indication: SCHIZOPHRENIA
     Dosage: 80 MG, 2X/DAY
     Route: 048
     Dates: start: 20100118, end: 20100510
  2. CLOZAPINE [Suspect]
     Dosage: 350 MG, UNK
  3. LUVOX [Suspect]
     Dosage: 300 MG, UNK

REACTIONS (1)
  - MUSCLE TWITCHING [None]
